FAERS Safety Report 5881653-8 (Version None)
Quarter: 2008Q3

REPORT INFORMATION
  Report Type: 
  Country: None (occurrence: None)
  Receive Date: 20080912
  Receipt Date: 20080707
  Transmission Date: 20090109
  Serious: No
  Sender: FDA-Public Use
  Company Number: US-ABBOTT-08P-163-0461570-00

PATIENT
  Age: 27 Year
  Sex: Male
  Weight: 54.48 kg

DRUGS (5)
  1. HUMIRA [Suspect]
     Indication: RHEUMATOID ARTHRITIS
     Route: 058
  2. HUMIRA [Suspect]
     Indication: ANKYLOSING SPONDYLITIS
  3. CYANOCOBALAMIN [Concomitant]
     Indication: HYPOVITAMINOSIS
     Route: 050
  4. METHOTREXATE [Concomitant]
     Indication: ANKYLOSING SPONDYLITIS
  5. METHOTREXATE [Concomitant]
     Indication: RHEUMATOID ARTHRITIS

REACTIONS (2)
  - INJECTION SITE NODULE [None]
  - UNDERDOSE [None]
